FAERS Safety Report 23139032 (Version 2)
Quarter: 2023Q4

REPORT INFORMATION
  Report Type: Spontaneous
  Country: US (occurrence: US)
  Receive Date: 20231102
  Receipt Date: 20231212
  Transmission Date: 20240110
  Serious: Yes (Disabling)
  Sender: FDA-Public Use
  Company Number: US-PFIZER INC-202300349064

PATIENT
  Age: 60 Year
  Sex: Female

DRUGS (3)
  1. XELJANZ [Suspect]
     Active Substance: TOFACITINIB CITRATE
     Dosage: UNK
  2. CLOZAPINE [Concomitant]
     Active Substance: CLOZAPINE
     Dosage: UNK
  3. IRON [Concomitant]
     Active Substance: IRON
     Dosage: UNK

REACTIONS (10)
  - Hand deformity [Unknown]
  - Malaise [Unknown]
  - Acne [Unknown]
  - Dyspnoea [Unknown]
  - Pain in extremity [Unknown]
  - General physical health deterioration [Unknown]
  - Stress [Unknown]
  - Illness [Unknown]
  - Asthma [Unknown]
  - Chronic obstructive pulmonary disease [Unknown]
